FAERS Safety Report 5754424-0 (Version None)
Quarter: 2008Q2

REPORT INFORMATION
  Report Type: 
  Country: None (occurrence: None)
  Receive Date: 20080530
  Receipt Date: 20080529
  Transmission Date: 20081010
  Serious: Yes (Death)
  Sender: FDA-Public Use
  Company Number: JP-BOEHRINGER INGELHEIM GMBH, GERMANY-2008-BP-08340NB

PATIENT
  Sex: Female

DRUGS (9)
  1. BI-SIFROL TABLETS [Suspect]
     Indication: PARKINSON'S DISEASE
     Route: 048
     Dates: start: 20050513
  2. ACTOS [Concomitant]
     Indication: DIABETES MELLITUS
     Route: 048
     Dates: start: 20001222
  3. MEVALOTIN [Concomitant]
     Indication: HYPERLIPIDAEMIA
     Route: 048
     Dates: start: 20020309
  4. LONGES [Concomitant]
     Indication: HYPERTENSION
     Route: 048
     Dates: start: 20020322
  5. ATELEC [Concomitant]
     Indication: HYPERTENSION
     Route: 048
     Dates: start: 20050128
  6. MYONAL [Concomitant]
     Indication: TENSION HEADACHE
     Route: 048
     Dates: start: 20050603
  7. VOLTAREN [Concomitant]
     Indication: ARTHRALGIA
     Route: 054
     Dates: start: 20051222
  8. MOHRUS TAPE L [Concomitant]
     Indication: ARTHRALGIA
     Route: 062
     Dates: start: 20050602
  9. DEPAS [Concomitant]
     Indication: TENSION HEADACHE
     Route: 048
     Dates: start: 20051223

REACTIONS (1)
  - DIABETIC COMA [None]
